FAERS Safety Report 21745716 (Version 1)
Quarter: 2022Q4

REPORT INFORMATION
  Report Type: Spontaneous
  Country: FR (occurrence: FR)
  Receive Date: 20221219
  Receipt Date: 20221219
  Transmission Date: 20230113
  Serious: Yes (Other)
  Sender: FDA-Public Use
  Company Number: FR-BAXTER-2022BAX026170

PATIENT
  Age: 59 Year
  Sex: Male

DRUGS (3)
  1. CYCLOPHOSPHAMIDE [Suspect]
     Active Substance: CYCLOPHOSPHAMIDE
     Indication: Product used for unknown indication
     Dosage: UNK (1500 MG/DOSE 1 DOSE(S)/WEEK 1 WEEK(S)/CYCLE, TREATMENT LINE NUMBER 1, DURATION: 2.8 MONTHS  150
     Route: 065
     Dates: end: 20180129
  2. DEXAMETHASONE [Suspect]
     Active Substance: DEXAMETHASONE
     Indication: Product used for unknown indication
     Dosage: UNK (20 MG/DOSE 4 DOSE(S)/WEEK 2 WEEK(S)/CYCLE, TREATMENT LINE NUMBER 1, DURATION: 2.8 MONTHS)
     Route: 065
     Dates: end: 20180129
  3. BORTEZOMIB [Suspect]
     Active Substance: BORTEZOMIB
     Indication: Product used for unknown indication
     Dosage: UNK (2.5 MG/DOSE 2 DOSE(S)/WEEK 2 WEEK(S)/CYCLE, TREATMENT LINE NUMBER 1, DURATION: 2.8 MONTHS)
     Route: 065
     Dates: end: 20180129

REACTIONS (3)
  - Haemodynamic instability [Unknown]
  - Inflammation [Unknown]
  - Eschar [Unknown]

NARRATIVE: CASE EVENT DATE: 20180129
